FAERS Safety Report 5277943-2 (Version None)
Quarter: 2007Q1

REPORT INFORMATION
  Report Type: 
  Country: None (occurrence: None)
  Receive Date: 20070320
  Receipt Date: 20070306
  Transmission Date: 20070707
  Serious: Yes (Other)
  Sender: FDA-Public Use
  Company Number: B0461998A

PATIENT
  Age: 41 Year
  Sex: Male

DRUGS (6)
  1. EPIVIR [Suspect]
     Indication: HIV INFECTION
  2. TENOFOVIR (FORMULATION UNKNOWN) (TENOFOVIR) [Suspect]
     Indication: HIV INFECTION
  3. RETROVIR [Suspect]
     Indication: HIV INFECTION
  4. NELFINAVIR MESYLATE (FORMULATION UNKNOWN) (NELFINAVIR MESYLATE) [Suspect]
     Indication: HIV INFECTION
  5. CO-TRIMOXAZOLE [Concomitant]
  6. AZITHROMYCIN [Concomitant]

REACTIONS (3)
  - ALANINE AMINOTRANSFERASE INCREASED [None]
  - ASPARTATE AMINOTRANSFERASE INCREASED [None]
  - IMMUNE RECONSTITUTION SYNDROME [None]
